FAERS Safety Report 5660845-7 (Version None)
Quarter: 2008Q1

REPORT INFORMATION
  Report Type: 
  Country: None (occurrence: None)
  Receive Date: 20080311
  Receipt Date: 20080304
  Transmission Date: 20080703
  Serious: Yes (Death, Other)
  Sender: FDA-Public Use
  Company Number: US-BAYER-200713970BCC

PATIENT
  Age: 91 Year
  Sex: Male
  Weight: 57 kg

DRUGS (5)
  1. ALEVE [Suspect]
     Indication: BACK PAIN
     Dosage: TOTAL DAILY DOSE: 440 MG  UNIT DOSE: 220 MG
     Route: 048
     Dates: start: 19970122, end: 19970125
  2. COTAZYM [Concomitant]
  3. PROPULSID [Concomitant]
  4. XANAX [Concomitant]
  5. DEXAMETHASONE TAB [Concomitant]

REACTIONS (3)
  - DEATH [None]
  - POLLAKIURIA [None]
  - URINARY INCONTINENCE [None]
